FAERS Safety Report 20998937 (Version 2)
Quarter: 2022Q3

REPORT INFORMATION
  Report Type: Spontaneous
  Country: IT (occurrence: IT)
  Receive Date: 20220623
  Receipt Date: 20220708
  Transmission Date: 20221026
  Serious: Yes (Other)
  Sender: FDA-Public Use
  Company Number: IT-TEVA-2022-IT-2047621

PATIENT
  Age: 84 Year
  Sex: Male

DRUGS (1)
  1. PREDNISONE [Suspect]
     Active Substance: PREDNISONE
     Indication: Chronic lymphocytic leukaemia
     Dosage: 10 MILLIGRAM DAILY;
     Route: 065

REACTIONS (2)
  - Lymphocytosis [Recovered/Resolved]
  - Symptom masked [Recovered/Resolved]

NARRATIVE: CASE EVENT DATE: 20200101
